FAERS Safety Report 4906636-3 (Version None)
Quarter: 2006Q1

REPORT INFORMATION
  Report Type: 
  Country: None (occurrence: None)
  Receive Date: 20060209
  Receipt Date: 20060206
  Transmission Date: 20060701
  Serious: Yes (Hospitalization)
  Sender: FDA-Public Use
  Company Number: 433308

PATIENT
  Age: 82 Year

DRUGS (13)
  1. DILATREND [Suspect]
     Indication: DRUG USE FOR UNKNOWN INDICATION
     Dosage: 25MG PER DAY
     Route: 048
  2. LANOXIN [Suspect]
     Indication: DRUG USE FOR UNKNOWN INDICATION
     Dosage: 62MCG PER DAY
     Route: 048
  3. NEULACTIL [Suspect]
     Indication: DRUG USE FOR UNKNOWN INDICATION
     Dosage: 12MG PER DAY
     Route: 048
  4. ZYPREXA [Suspect]
     Indication: DRUG USE FOR UNKNOWN INDICATION
     Dosage: 2.5MG PER DAY
     Route: 048
     Dates: start: 20050112
  5. AMARYL [Concomitant]
  6. ASPIRIN [Concomitant]
  7. LIPITOR [Concomitant]
  8. CHLORVESCENT [Concomitant]
  9. FRUSEMIDE [Concomitant]
  10. PANAMAX [Concomitant]
  11. KEFLEX [Concomitant]
  12. FLOXACILLIN SODIUM [Concomitant]
  13. PROTAPHANE [Concomitant]

REACTIONS (8)
  - ATRIAL FIBRILLATION [None]
  - BRADYCARDIA [None]
  - COMA [None]
  - DEPRESSED LEVEL OF CONSCIOUSNESS [None]
  - HYPOTHERMIA [None]
  - LOSS OF CONSCIOUSNESS [None]
  - MIOSIS [None]
  - RESPIRATORY ARREST [None]
